FAERS Safety Report 4650601-0 (Version None)
Quarter: 2005Q2

REPORT INFORMATION
  Report Type: 
  Country: None (occurrence: None)
  Receive Date: 20050428
  Receipt Date: 20050428
  Transmission Date: 20051028
  Serious: No
  Sender: FDA-Public Use
  Company Number: None

PATIENT
  Sex: Male
  Weight: 88.4 kg

DRUGS (8)
  1. CAPECITABINE [Suspect]
     Indication: RECTAL CANCER
     Dosage: 825 MG/M2 EVERY 12 HOURS ORALLY DAILY (5 DAYS PER WEEK) DURING RADIOTHERAPY
     Route: 048
     Dates: start: 20050103
  2. RADIOTHERAPY [Suspect]
  3. OXALIPLATIN [Suspect]
     Dosage: 50 MG/M2 IV OVER 2 HOURS DAYS 1,8,15,22,29 FOLLOWED BY SURGERY THEN POSTOPERATIVE CHEMOTHERAPY
     Route: 042
  4. PREVACID [Concomitant]
  5. DYAZIDE [Concomitant]
  6. ALLOPURINOL [Concomitant]
  7. INDOCIN [Concomitant]
  8. VICODIN [Concomitant]

REACTIONS (1)
  - DEATH [None]
